FAERS Safety Report 25824515 (Version 1)
Quarter: 2025Q3

REPORT INFORMATION
  Report Type: Spontaneous
  Country: US (occurrence: US)
  Receive Date: 20250919
  Receipt Date: 20250919
  Transmission Date: 20251020
  Serious: No
  Sender: SANOFI AVENTIS
  Company Number: US-SA-2025SA279175

PATIENT
  Age: 85 Year
  Sex: Female

DRUGS (12)
  1. DUPIXENT [Suspect]
     Active Substance: DUPILUMAB
     Indication: Neurodermatitis
     Route: 058
     Dates: start: 20250807, end: 20250807
  2. DUPIXENT [Suspect]
     Active Substance: DUPILUMAB
     Dosage: 300 MG, QOW
     Route: 058
     Dates: start: 20250821
  3. TRIAMCINOLONE [Concomitant]
     Active Substance: TRIAMCINOLONE
  4. PANTOPRAZOLE [Concomitant]
     Active Substance: PANTOPRAZOLE
  5. JARDIANCE [Concomitant]
     Active Substance: EMPAGLIFLOZIN
  6. EZETIMIBE [Concomitant]
     Active Substance: EZETIMIBE
  7. NATEGLINIDE [Concomitant]
     Active Substance: NATEGLINIDE
  8. MINERALS\VITAMINS [Concomitant]
     Active Substance: MINERALS\VITAMINS
  9. ALPRAZOLAM [Concomitant]
     Active Substance: ALPRAZOLAM
  10. FENOFIBRATE [Concomitant]
     Active Substance: FENOFIBRATE
  11. DULOXETINE [Concomitant]
     Active Substance: DULOXETINE
  12. LEVOTHYROXINE [Concomitant]
     Active Substance: LEVOTHYROXINE

REACTIONS (3)
  - Injection site pain [Recovered/Resolved]
  - Arthralgia [Unknown]
  - Neurodermatitis [Unknown]

NARRATIVE: CASE EVENT DATE: 20250101
